FAERS Safety Report 5237208-1 (Version None)
Quarter: 2007Q1

REPORT INFORMATION
  Report Type: 
  Country: None (occurrence: None)
  Receive Date: 20061208
  Receipt Date: 20050316
  Transmission Date: 20070707
  Serious: Yes (Other)
  Sender: FDA-Public Use
  Company Number: 2005UW04159

PATIENT
  Age: 65 Year
  Sex: Female
  Weight: 77.11 kg

DRUGS (8)
  1. CRESTOR [Suspect]
     Indication: BLOOD CHOLESTEROL INCREASED
     Dates: start: 20041201
  2. CARDIZEM [Concomitant]
  3. METFORMIN HCL [Concomitant]
  4. RITALIN [Concomitant]
  5. LISINOPRIL [Concomitant]
  6. DITROPAN [Concomitant]
  7. TRAMADOL HCL [Concomitant]
  8. NEURONTIN [Concomitant]

REACTIONS (4)
  - CHEILITIS [None]
  - DRY MOUTH [None]
  - ORAL FUNGAL INFECTION [None]
  - RASH [None]
